FAERS Safety Report 11044409 (Version 4)
Quarter: 2015Q2

REPORT INFORMATION
  Report Type: Spontaneous
  Country: US (occurrence: US)
  Receive Date: 20150417
  Receipt Date: 20150610
  Transmission Date: 20150821
  Serious: Yes (Other)
  Sender: FDA-Public Use
  Company Number: US-PFIZER INC-2015128912

PATIENT
  Age: 76 Year
  Sex: Male
  Weight: 81 kg

DRUGS (6)
  1. SUTENT [Suspect]
     Active Substance: SUNITINIB MALATE
     Dosage: 25 MG, DAILY, 2 WKS ON, 1 WK OFF
     Route: 048
     Dates: start: 20150504
  2. OXYCODONE [Concomitant]
     Active Substance: OXYCODONE
     Dosage: 5 MG, UNK
  3. ZOMETA [Concomitant]
     Active Substance: ZOLEDRONIC ACID
     Indication: METASTASES TO BONE
     Dosage: 4 MG, UNK
  4. SUTENT [Suspect]
     Active Substance: SUNITINIB MALATE
     Indication: METASTATIC RENAL CELL CARCINOMA
     Dosage: 50 MG, DAILY, FOR 4 WKS ON AND 2 WKS OFF
     Dates: start: 20150309, end: 20150503
  5. AVODART [Concomitant]
     Active Substance: DUTASTERIDE
     Dosage: 0.5 MG, UNK
  6. PERCOCET [Concomitant]
     Active Substance: ACETAMINOPHEN\OXYCODONE HYDROCHLORIDE
     Dosage: 10/325 PRN

REACTIONS (18)
  - Diarrhoea [Unknown]
  - Abdominal discomfort [Unknown]
  - Arrhythmia [Unknown]
  - Cardiac failure congestive [Unknown]
  - Haemoglobin decreased [Unknown]
  - Proteinuria [Unknown]
  - Fatigue [Unknown]
  - Blood calcium abnormal [Recovering/Resolving]
  - Thrombocytopenia [Unknown]
  - Osteonecrosis of jaw [Unknown]
  - White blood cell count decreased [Unknown]
  - Yellow skin [Unknown]
  - Rash [Unknown]
  - Hypertension [Unknown]
  - Neutropenia [Unknown]
  - Haemorrhage [Unknown]
  - Thyroid disorder [Unknown]
  - Skin discolouration [Unknown]

NARRATIVE: CASE EVENT DATE: 2015
